FAERS Safety Report 11747628 (Version 7)
Quarter: 2017Q1

REPORT INFORMATION
  Report Type: Report from Study
  Country: BR (occurrence: BR)
  Receive Date: 20151117
  Receipt Date: 20170124
  Transmission Date: 20170428
  Serious: Yes (Life-Threatening, Hospitalization, Disabling, Other)
  Sender: FDA-Public Use
  Company Number: PHHY2015BR149642

PATIENT
  Sex: Female
  Weight: 19.4 kg

DRUGS (2)
  1. EXJADE [Suspect]
     Active Substance: DEFERASIROX
     Dosage: UNK
     Route: 048
     Dates: end: 201508
  2. EXJADE [Suspect]
     Active Substance: DEFERASIROX
     Indication: SICKLE CELL ANAEMIA
     Dosage: 20 MG/KG, QD (375 MG, QD (1 DF OF 125 AND 1 DF OF 250 MG)
     Route: 048
     Dates: start: 2013

REACTIONS (13)
  - Drooling [Unknown]
  - Grip strength decreased [Unknown]
  - Cerebrovascular accident [Recovering/Resolving]
  - Moyamoya disease [Unknown]
  - Blood iron increased [Unknown]
  - Aphasia [Unknown]
  - Choking [Unknown]
  - Incorrect route of drug administration [Unknown]
  - Liver disorder [Not Recovered/Not Resolved]
  - Dysphagia [Recovering/Resolving]
  - Weight decreased [Unknown]
  - Vomiting [Unknown]
  - Haemoglobin decreased [Unknown]

NARRATIVE: CASE EVENT DATE: 2014
